FAERS Safety Report 9610961 (Version 1)
Quarter: 2013Q4

REPORT INFORMATION
  Report Type: Spontaneous
  Country: US (occurrence: US)
  Receive Date: 20131009
  Receipt Date: 20131009
  Transmission Date: 20140711
  Serious: No
  Sender: FDA-Public Use
  Company Number: US-009507513-1309USA009617

PATIENT
  Sex: Female

DRUGS (1)
  1. NEXPLANON [Suspect]
     Dosage: 1 ROD / THREE YEARS
     Route: 059
     Dates: start: 201302

REACTIONS (4)
  - Device breakage [Unknown]
  - Product quality issue [Unknown]
  - Device kink [Unknown]
  - No adverse event [Unknown]
